FAERS Safety Report 13043582 (Version 1)
Quarter: 2016Q4

REPORT INFORMATION
  Report Type: Spontaneous
  Country: US (occurrence: US)
  Receive Date: 20161220
  Receipt Date: 20161220
  Transmission Date: 20170207
  Serious: No
  Sender: FDA-Public Use
  Company Number: US-009507513-1612USA001360

PATIENT

DRUGS (1)
  1. INTRON A [Suspect]
     Active Substance: INTERFERON ALFA-2B
     Dosage: THERAPY ROUTE: INTRAMUSCULAR, SUBCUTANEOUS, INTRALESIONAL, OR INTRAVENOUS INJECTION.
     Route: 042

REACTIONS (2)
  - Drug dose omission [Unknown]
  - Disease progression [Unknown]
